FAERS Safety Report 21741692 (Version 1)
Quarter: 2022Q4

REPORT INFORMATION
  Report Type: Report from Study
  Country: CH (occurrence: CH)
  Receive Date: 20221216
  Receipt Date: 20221216
  Transmission Date: 20230112
  Serious: Yes (Hospitalization)
  Sender: FDA-Public Use
  Company Number: CH-ABBVIE-21K-151-4145921-00

PATIENT
  Age: 71 Year
  Sex: Female
  Weight: 56 kg

DRUGS (18)
  1. CARBIDOPA\LEVODOPA [Suspect]
     Active Substance: CARBIDOPA\LEVODOPA
     Indication: Parkinson^s disease
     Dosage: MD: 6.0 ML, CRD: 2.4 ML/H, CRN: 0 ML/H, ED: 1.0 ML, 16H THERAPY
     Route: 050
     Dates: start: 20211018, end: 20211021
  2. CARBIDOPA\LEVODOPA [Suspect]
     Active Substance: CARBIDOPA\LEVODOPA
     Dosage: MD: 10.0 ML, CRD: 2.1 ML/H, CRN: 0 ML/H, ED: 1.0 ML, 16H THERAPY
     Route: 050
     Dates: start: 20211021, end: 20211022
  3. CARBIDOPA\LEVODOPA [Suspect]
     Active Substance: CARBIDOPA\LEVODOPA
     Dosage: MD: 10.0 ML, CRD: 2.3 ML/H, CRN: 0 ML/H, ED: 1.0 ML, 16H THERAPY
     Route: 050
     Dates: start: 20211022, end: 20211026
  4. CARBIDOPA\LEVODOPA [Suspect]
     Active Substance: CARBIDOPA\LEVODOPA
     Dosage: MD: 10.0 ML, CRD: 2.4 ML/H, CRN: 0 ML/H, ED: 1.0 ML, 16H THERAPY
     Route: 050
     Dates: start: 20211026, end: 20211101
  5. CARBIDOPA\LEVODOPA [Suspect]
     Active Substance: CARBIDOPA\LEVODOPA
     Dosage: MD: 10.0 ML, CRD: 3.4 ML/H, CRN: 0 ML/H, ED: 1.5 ML 16H THERAPY
     Route: 050
     Dates: start: 20220121, end: 20220826
  6. CARBIDOPA\LEVODOPA [Suspect]
     Active Substance: CARBIDOPA\LEVODOPA
     Dosage: MD: 10.0 ML, CRD: 2.7 ML/H, CRN: 0 ML/H, ED: 1.0 ML  16H THERAPY
     Route: 050
     Dates: start: 202111, end: 202111
  7. CARBIDOPA\LEVODOPA [Suspect]
     Active Substance: CARBIDOPA\LEVODOPA
     Dosage: MD: 10.0 ML, CRD: 2.7 ML/H, CRN: 0 ML/H, ED: 1.0 ML 16H THERAPY
     Route: 050
     Dates: start: 20211104, end: 20211123
  8. CARBIDOPA\LEVODOPA [Suspect]
     Active Substance: CARBIDOPA\LEVODOPA
     Dosage: MD: 10.0 ML, CRD: 2.9 ML/H, CRN: 0 ML/H, ED: 1.0 ML 16H THERAPY
     Route: 050
     Dates: start: 20211123, end: 20220117
  9. CARBIDOPA\LEVODOPA [Suspect]
     Active Substance: CARBIDOPA\LEVODOPA
     Dosage: MD: 10.0 ML, CRD: 3.2 ML/H, CRN: 0 ML/H, ED: 1.5 ML 16H THERAPY
     Route: 050
     Dates: start: 20220117, end: 20220121
  10. CARBIDOPA\LEVODOPA [Suspect]
     Active Substance: CARBIDOPA\LEVODOPA
     Dosage: MD: 10.0 ML, CRD: 3.5 ML/H, CRN: 0 ML/H, ED: 1.5 ML 16H THERAPY
     Route: 050
     Dates: start: 20220913, end: 20220916
  11. CARBIDOPA\LEVODOPA [Suspect]
     Active Substance: CARBIDOPA\LEVODOPA
     Dosage: MD: 10.0 ML, CRD: 3.0 ML/H, CRN: 0 ML/H, ED: 1.5 ML 16H THERAPY
     Route: 050
     Dates: start: 20221025, end: 20221104
  12. CARBIDOPA\LEVODOPA [Suspect]
     Active Substance: CARBIDOPA\LEVODOPA
     Dosage: MD: 10.0 ML, CRD: 3.2 ML/H, CRN: 0 ML/H, ED: 1.5 ML 16H THERAPY
     Route: 050
     Dates: start: 20220916, end: 20221021
  13. CARBIDOPA\LEVODOPA [Suspect]
     Active Substance: CARBIDOPA\LEVODOPA
     Dosage: MD: 10.0 ML, CRD: 3.3 ML/H, CRN: 0 ML/H, ED: 1.5 ML 16H THERAPY
     Route: 050
     Dates: start: 20220826, end: 20220913
  14. CARBIDOPA\LEVODOPA [Suspect]
     Active Substance: CARBIDOPA\LEVODOPA
     Dosage: MD: 10.0 ML, CRD: 3.1 ML/H, CRN: 0 ML/H, ED: 1.5 ML 16H THERAPY
     Route: 050
     Dates: start: 20221021, end: 20221025
  15. CARBIDOPA\LEVODOPA [Suspect]
     Active Substance: CARBIDOPA\LEVODOPA
     Dosage: MD: 10 ML, CRD: 3.2 ML/H, ED: 1.5 ML, 16 HOUR THERAPY
     Route: 050
     Dates: start: 20221206
  16. CARBIDOPA\LEVODOPA [Suspect]
     Active Substance: CARBIDOPA\LEVODOPA
     Dosage: MD: 10.0 ML, CRD: 3.1 ML/H, CRN: 0 ML/H, ED: 1.5 ML
     Route: 050
     Dates: start: 20221104, end: 20221206
  17. PRAMIPEXOLE [Concomitant]
     Active Substance: PRAMIPEXOLE
     Indication: Parkinson^s disease
     Dates: start: 20211217, end: 20211217
  18. PRAMIPEXOLE [Concomitant]
     Active Substance: PRAMIPEXOLE
     Indication: Parkinson^s disease
     Dates: start: 20211217

REACTIONS (16)
  - Fall [Recovered/Resolved]
  - Mobility decreased [Not Recovered/Not Resolved]
  - Device placement issue [Recovered/Resolved]
  - Erythema [Recovered/Resolved]
  - Dyskinesia [Recovering/Resolving]
  - Freezing phenomenon [Recovering/Resolving]
  - Rib fracture [Recovering/Resolving]
  - Stoma site discharge [Unknown]
  - Akinesia [Recovering/Resolving]
  - Balance disorder [Recovered/Resolved]
  - Drug ineffective [Recovered/Resolved]
  - Freezing phenomenon [Recovered/Resolved]
  - Therapeutic product effect incomplete [Unknown]
  - On and off phenomenon [Recovering/Resolving]
  - Stoma complication [Unknown]
  - Gait disturbance [Unknown]

NARRATIVE: CASE EVENT DATE: 20211001
